FAERS Safety Report 17549590 (Version 1)
Quarter: 2020Q1

REPORT INFORMATION
  Report Type: Spontaneous
  Country: US (occurrence: US)
  Receive Date: 20200316
  Receipt Date: 20200316
  Transmission Date: 20200409
  Serious: Yes (Death)
  Sender: FDA-Public Use
  Company Number: None

PATIENT
  Age: 55 Year
  Sex: Male
  Weight: 74.25 kg

DRUGS (2)
  1. MULTIVITAMIN [Concomitant]
     Active Substance: VITAMINS
  2. CIPROFLOXACIN 500MG TABLETS [Suspect]
     Active Substance: CIPROFLOXACIN
     Indication: URINARY TRACT INFECTION
     Dosage: ?          QUANTITY:1 TABLET(S);?
     Route: 048
     Dates: start: 20170517, end: 20170518

REACTIONS (8)
  - Disorientation [None]
  - Feeling drunk [None]
  - Disturbance in attention [None]
  - Abulia [None]
  - Completed suicide [None]
  - Feeling abnormal [None]
  - Paranoia [None]
  - Toxicity to various agents [None]

NARRATIVE: CASE EVENT DATE: 20170517
